FAERS Safety Report 4741897-5 (Version None)
Quarter: 2005Q3

REPORT INFORMATION
  Report Type: 
  Country: None (occurrence: None)
  Receive Date: 20050801
  Receipt Date: 20050620
  Transmission Date: 20060218
  Serious: No
  Sender: FDA-Public Use
  Company Number: 2005PV000069

PATIENT
  Age: 57 Year
  Sex: Female
  Weight: 106.5953 kg

DRUGS (6)
  1. BYETTA [Suspect]
     Indication: DIABETES MELLITUS NON-INSULIN-DEPENDENT
     Dosage: 5 UG;BID;SC
     Route: 058
     Dates: start: 20050617
  2. SYNTHROID [Concomitant]
  3. AVAPRO [Concomitant]
  4. METFORMIN [Concomitant]
  5. METFORMIN [Concomitant]
  6. AMARYL [Concomitant]

REACTIONS (3)
  - BLOOD GLUCOSE INCREASED [None]
  - FEELING JITTERY [None]
  - INJECTION SITE ERYTHEMA [None]
